FAERS Safety Report 14701290 (Version 1)
Quarter: 2018Q1

REPORT INFORMATION
  Report Type: Spontaneous
  Country: US (occurrence: US)
  Receive Date: 20180330
  Receipt Date: 20180330
  Transmission Date: 20180509
  Serious: No
  Sender: FDA-Public Use
  Company Number: US-TEVA-2018-US-874052

PATIENT
  Sex: Female

DRUGS (2)
  1. BUMETANIDE. [Suspect]
     Active Substance: BUMETANIDE
     Dosage: 2 MILLIGRAM DAILY;
     Route: 048
  2. BUMETANIDE. [Suspect]
     Active Substance: BUMETANIDE
     Dosage: 4 MILLIGRAM DAILY;
     Route: 048

REACTIONS (2)
  - Pain in extremity [Unknown]
  - Muscle tightness [Unknown]
